FAERS Safety Report 9482370 (Version 1)
Quarter: 2013Q3

REPORT INFORMATION
  Report Type: Spontaneous
  Country: GB (occurrence: GB)
  Receive Date: 20130828
  Receipt Date: 20130828
  Transmission Date: 20140515
  Serious: Yes (Hospitalization)
  Sender: FDA-Public Use
  Company Number: PHHY2013GB090957

PATIENT
  Age: 85 Year
  Sex: Female

DRUGS (6)
  1. OMEPRAZOLE [Suspect]
     Indication: DUODENAL ULCER
     Dosage: 40 MG, QD
     Route: 048
     Dates: end: 20130424
  2. INDAPAMIDE [Suspect]
     Dosage: 1.5 MG, QD
     Route: 048
     Dates: end: 20130424
  3. CITALOPRAM [Suspect]
     Dosage: 20 MG, QD
     Route: 048
     Dates: end: 20130424
  4. SIMVASTATIN [Concomitant]
     Dosage: 20 MG, QD (ONE AT NIGHT)
  5. PARACETAMOL [Concomitant]
  6. CHLORPHENIRAMINE [Concomitant]
     Dosage: 4 MG, UNK

REACTIONS (5)
  - Hypokalaemia [Recovered/Resolved]
  - Lethargy [Unknown]
  - Mobility decreased [Unknown]
  - Hyponatraemia [Recovered/Resolved]
  - Diarrhoea [Unknown]
